FAERS Safety Report 19275716 (Version 1)
Quarter: 2021Q2

REPORT INFORMATION
  Report Type: Spontaneous
  Country: US (occurrence: US)
  Receive Date: 20210519
  Receipt Date: 20210519
  Transmission Date: 20210717
  Serious: Yes (Hospitalization)
  Sender: FDA-Public Use
  Company Number: NVSC2021US112105

PATIENT
  Age: 69 Year
  Sex: Male

DRUGS (2)
  1. RANITIDINE. [Suspect]
     Active Substance: RANITIDINE
     Indication: DYSPEPSIA
     Dosage: 300 MG, QD
     Route: 048
     Dates: end: 201912
  2. RANITIDINE. [Suspect]
     Active Substance: RANITIDINE
     Indication: DYSPEPSIA
     Dosage: 300 MG, QD
     Route: 048
     Dates: end: 201912

REACTIONS (2)
  - Bladder cancer [Recovering/Resolving]
  - Colorectal cancer [Recovering/Resolving]

NARRATIVE: CASE EVENT DATE: 20050805
